FAERS Safety Report 10235690 (Version 1)
Quarter: 2014Q2

REPORT INFORMATION
  Report Type: Spontaneous
  Country: JP (occurrence: None)
  Receive Date: 20140611
  Receipt Date: 20140611
  Transmission Date: 20141212
  Serious: No
  Sender: FDA-Public Use
  Company Number: AE-SPE-2014-018

PATIENT
  Age: 9 Month
  Sex: Female

DRUGS (1)
  1. MEIACT MS (CEFIDITOREN PIVOXIL) [Suspect]
     Route: 048

REACTIONS (1)
  - Agranulocytosis [None]
